FAERS Safety Report 6643107-0 (Version None)
Quarter: 2010Q1

REPORT INFORMATION
  Report Type: 
  Country: None (occurrence: None)
  Receive Date: 20100319
  Receipt Date: 20100308
  Transmission Date: 20100710
  Serious: Yes (Other)
  Sender: FDA-Public Use
  Company Number: PHHY2009JP14833

PATIENT
  Sex: Male

DRUGS (7)
  1. TASIGNA [Suspect]
     Indication: CHRONIC MYELOID LEUKAEMIA
     Dosage: 800 MG DAILY
     Route: 048
     Dates: start: 20090403, end: 20090407
  2. TASIGNA [Suspect]
     Dosage: 200 MG/DAY
     Dates: start: 20090421, end: 20090527
  3. CELESTAMINE TAB [Concomitant]
     Indication: CHRONIC MYELOID LEUKAEMIA
     Dosage: 2 DF, UNK
     Route: 048
     Dates: start: 20080710, end: 20080716
  4. PREDONINE [Concomitant]
     Indication: CHRONIC MYELOID LEUKAEMIA
     Dosage: 10 MG, UNK
     Route: 048
     Dates: start: 20080821, end: 20081002
  5. ASTOMIN [Concomitant]
     Dosage: 300 MG/DAY
     Route: 048
     Dates: start: 20090408, end: 20090420
  6. MUCODYNE [Concomitant]
     Dosage: 1500 MG, UNK
     Route: 048
     Dates: start: 20090408, end: 20090420
  7. KLARICID [Concomitant]
     Dosage: 400 MG, UNK
     Route: 048
     Dates: start: 20090408, end: 20090420

REACTIONS (8)
  - BRONCHITIS [None]
  - COUGH [None]
  - DYSPNOEA [None]
  - GENERALISED ERYTHEMA [None]
  - HEPATIC FUNCTION ABNORMAL [None]
  - PLEURAL EFFUSION [None]
  - PRODUCTIVE COUGH [None]
  - PYREXIA [None]
